FAERS Safety Report 7867270-9 (Version None)
Quarter: 2011Q4

REPORT INFORMATION
  Report Type: 
  Country: None (occurrence: None)
  Receive Date: 20111028
  Receipt Date: 20111017
  Transmission Date: 20120403
  Serious: Yes (Other)
  Sender: FDA-Public Use
  Company Number: US-JNJFOC-20101204236

PATIENT
  Sex: Female
  Weight: 102.06 kg

DRUGS (15)
  1. TYLENOL-500 [Concomitant]
  2. JANUVIA [Concomitant]
     Route: 048
  3. BIOTIN [Concomitant]
     Route: 048
  4. PROCTOSOL HC [Concomitant]
     Route: 054
  5. REMICADE [Suspect]
     Indication: COLITIS ULCERATIVE
     Route: 042
     Dates: start: 20100201, end: 20100801
  6. LOPERAMIDE HCL [Concomitant]
     Dosage: 1.2 TABS DAILY
     Route: 048
  7. HUMALOG [Concomitant]
     Route: 058
  8. HYOSCYAMINE SULFATE [Concomitant]
     Route: 048
  9. ASPIRIN [Concomitant]
     Route: 048
  10. PYRIDOXINE HCL [Concomitant]
     Route: 048
  11. TRAMADOL HCL [Concomitant]
     Dosage: 1 TAB EVERY 4 HOURS AS NEEDED
     Route: 048
  12. MESALAMINE [Concomitant]
     Route: 054
  13. PRINZIDE [Concomitant]
     Dosage: 20-12.5 MG TABLET
     Route: 048
  14. FOLIC ACID [Concomitant]
     Route: 048
  15. MERCAPTOPURINE [Concomitant]
     Dosage: 50 MG TABLETS/2.5 TABLETS DAILY
     Route: 048

REACTIONS (4)
  - MOUTH ULCERATION [None]
  - SYSTEMIC LUPUS ERYTHEMATOSUS [None]
  - OROPHARYNGEAL PAIN [None]
  - INJURY [None]
